FAERS Safety Report 8918136 (Version 1)
Quarter: 2012Q4

REPORT INFORMATION
  Report Type: 
  Country: BR (occurrence: BR)
  Receive Date: 20121120
  Receipt Date: 20121120
  Transmission Date: 20130627
  Serious: Yes (Other)
  Sender: FDA-Public Use
  Company Number: PHHY2012BR105196

PATIENT
  Sex: Female

DRUGS (2)
  1. TOFRANIL [Suspect]
     Dosage: 25 mg
     Dates: start: 2007
  2. IMIPRAMINE [Suspect]
     Dosage: 25 mg, UNK
     Dates: end: 20121113

REACTIONS (2)
  - Intervertebral disc protrusion [Not Recovered/Not Resolved]
  - Fall [Unknown]
